FAERS Safety Report 25711620 (Version 2)
Quarter: 2025Q3

REPORT INFORMATION
  Report Type: Spontaneous
  Country: EU (occurrence: EU)
  Receive Date: 20250821
  Receipt Date: 20250910
  Transmission Date: 20251021
  Serious: Yes (Life-Threatening, Hospitalization)
  Sender: TEVA
  Company Number: EU-TEVA-VS-3363348

PATIENT
  Age: 73 Year

DRUGS (2)
  1. QUETIAPINE [Suspect]
     Active Substance: QUETIAPINE
     Indication: Bipolar disorder
     Route: 048
  2. LAMOTRIGINE [Suspect]
     Active Substance: LAMOTRIGINE
     Indication: Bipolar disorder
     Route: 048

REACTIONS (4)
  - Coma [Recovering/Resolving]
  - Toxicity to various agents [Recovering/Resolving]
  - Bezoar [Recovered/Resolved]
  - Overdose [Unknown]
